FAERS Safety Report 22098858 (Version 1)
Quarter: 2023Q1

REPORT INFORMATION
  Report Type: Spontaneous
  Country: US (occurrence: None)
  Receive Date: 20230315
  Receipt Date: 20230315
  Transmission Date: 20230418
  Serious: Yes (Other)
  Sender: FDA-Public Use
  Company Number: None

PATIENT
  Age: 30 Year
  Sex: Female
  Weight: 48.15 kg

DRUGS (4)
  1. VYVANSE [Suspect]
     Active Substance: LISDEXAMFETAMINE DIMESYLATE
     Indication: Attention deficit hyperactivity disorder
     Dosage: 30 CAPSULES ORAL?
     Route: 048
     Dates: start: 20230228, end: 20230310
  2. DEXTROAMPHET SACCHARAT, AMPHET ASPARTATE, DEXTROAMPHET SULFATE AND AMP [Suspect]
     Active Substance: AMPHETAMINE ASPARTATE\AMPHETAMINE SULFATE\DEXTROAMPHETAMINE SACCHARATE\DEXTROAMPHETAMINE SULFATE
     Indication: Attention deficit hyperactivity disorder
     Dosage: 1.5 TABLET(S) DAILY ORAL? ?
     Route: 048
     Dates: start: 20230210, end: 20230310
  3. Vyvanse Adderall [Concomitant]
  4. EXCEDRIN [Concomitant]
     Active Substance: ACETAMINOPHEN\ASPIRIN\CAFFEINE

REACTIONS (2)
  - Drug ineffective [None]
  - Drug screen negative [None]

NARRATIVE: CASE EVENT DATE: 20230310
